FAERS Safety Report 6697187-7 (Version None)
Quarter: 2010Q2

REPORT INFORMATION
  Report Type: 
  Country: None (occurrence: None)
  Receive Date: 20100426
  Receipt Date: 20100416
  Transmission Date: 20101027
  Serious: Yes (Other)
  Sender: FDA-Public Use
  Company Number: US-PFIZER INC-2006102223

PATIENT
  Sex: Female
  Weight: 84 kg

DRUGS (7)
  1. PROVERA [Suspect]
     Indication: HORMONE REPLACEMENT THERAPY
     Dosage: 2.5 MG, UNK
     Route: 048
     Dates: start: 19770601, end: 19971201
  2. PREMARIN [Suspect]
     Indication: HORMONE REPLACEMENT THERAPY
     Dosage: 0.625 MG, UNK
     Route: 065
     Dates: start: 19970601, end: 19971201
  3. PREMPRO [Suspect]
     Indication: HORMONE REPLACEMENT THERAPY
     Dosage: UNK %, UNK
     Route: 065
     Dates: start: 19980101, end: 19981001
  4. PREMPRO [Suspect]
     Indication: MENOPAUSAL SYMPTOMS
  5. SYNTHROID [Concomitant]
     Indication: HYPOTHYROIDISM
     Dosage: 0.1 MG, UNK
     Dates: start: 19720101
  6. HYDROCODONE [Concomitant]
     Indication: PAIN MANAGEMENT
     Dosage: UNK
     Dates: start: 19980101
  7. XANAX [Concomitant]
     Indication: ANXIETY
     Dosage: UNK
     Dates: start: 19870101

REACTIONS (1)
  - BREAST CANCER [None]
